FAERS Safety Report 7927936-9 (Version None)
Quarter: 2011Q4

REPORT INFORMATION
  Report Type: 
  Country: None (occurrence: None)
  Receive Date: 20111116
  Receipt Date: 20111111
  Transmission Date: 20120403
  Serious: Yes (Disabling, Other)
  Sender: FDA-Public Use
  Company Number: ACO_22713_2010

PATIENT
  Age: 82 Year
  Sex: Male
  Weight: 88.4514 kg

DRUGS (8)
  1. MULTIVITAMINS (ASCORBIC ACID, ERGOCALCIFEROL, FOLIC ACID, NICOTINAMIDE [Concomitant]
  2. LOSARTAN POTASSIUM [Concomitant]
  3. AMPYRA (DALFAMPRIDINE) TABLET, 10MG [Suspect]
     Indication: GAIT DISTURBANCE
     Dosage: 10 MG, QD, ORAL   10 MG,  , ORAL
     Route: 048
     Dates: start: 20100730, end: 20100802
  4. AMPYRA (DALFAMPRIDINE) TABLET, 10MG [Suspect]
     Indication: GAIT DISTURBANCE
     Dosage: 10 MG, QD, ORAL   10 MG,  , ORAL
     Route: 048
     Dates: start: 20100501, end: 20100701
  5. VALSARTAN [Concomitant]
  6. CRESTOR [Concomitant]
  7. PROPAFENONE HCL [Concomitant]
  8. COUMADIN [Concomitant]

REACTIONS (9)
  - GAIT DISTURBANCE [None]
  - DRUG WITHDRAWAL SYNDROME [None]
  - INSOMNIA [None]
  - INAPPROPRIATE SCHEDULE OF DRUG ADMINISTRATION [None]
  - WEIGHT DECREASED [None]
  - PARAESTHESIA [None]
  - ABASIA [None]
  - HALLUCINATION, AUDITORY [None]
  - PERIPHERAL COLDNESS [None]
